FAERS Safety Report 7634446-5 (Version None)
Quarter: 2011Q3

REPORT INFORMATION
  Report Type: 
  Country: None (occurrence: None)
  Receive Date: 20110725
  Receipt Date: 20110720
  Transmission Date: 20111222
  Serious: Yes (Hospitalization)
  Sender: FDA-Public Use
  Company Number: PHHO2010AU13725

PATIENT
  Sex: Female
  Weight: 55 kg

DRUGS (6)
  1. CERTICAN [Suspect]
     Indication: LUNG TRANSPLANT
     Dosage: 0.5 MG, DAILY
     Route: 048
     Dates: start: 20080701, end: 20100910
  2. CYCLOSPORINE [Concomitant]
     Indication: LUNG TRANSPLANT
  3. MYCOPHENOLIC ACID [Suspect]
     Indication: LUNG TRANSPLANT
     Dosage: UNK
     Route: 048
     Dates: start: 20080531
  4. TACROLIMUS [Suspect]
     Dosage: UNK
     Route: 048
     Dates: start: 20110627
  5. TACROLIMUS [Suspect]
     Indication: LUNG TRANSPLANT
     Dosage: UNK
     Route: 048
  6. CERTICAN [Suspect]
     Dosage: 0.25 MG, DAILY
     Route: 048
     Dates: start: 20100912, end: 20110607

REACTIONS (5)
  - NEUROTOXICITY [None]
  - HEADACHE [None]
  - NAUSEA [None]
  - IMMUNOSUPPRESSANT DRUG LEVEL INCREASED [None]
  - TOXICITY TO VARIOUS AGENTS [None]
